FAERS Safety Report 8836212 (Version 1)
Quarter: 2012Q4

REPORT INFORMATION
  Report Type: 
  Country: AU (occurrence: AU)
  Receive Date: 20121011
  Receipt Date: 20121011
  Transmission Date: 20130627
  Serious: Yes (Other)
  Sender: FDA-Public Use
  Company Number: AU-PFIZER INC-2012250912

PATIENT
  Sex: Female

DRUGS (1)
  1. ZOLOFT [Suspect]
     Dosage: UNK

REACTIONS (10)
  - Drug dependence [Unknown]
  - Confusional state [Unknown]
  - Dyspnoea [Unknown]
  - Headache [Unknown]
  - Hyperhidrosis [Unknown]
  - Hypoaesthesia [Unknown]
  - Irritability [Unknown]
  - Abdominal pain upper [Unknown]
  - Dysmenorrhoea [Unknown]
  - Feeling abnormal [Unknown]
